FAERS Safety Report 6752730-4 (Version None)
Quarter: 2010Q2

REPORT INFORMATION
  Report Type: 
  Country: None (occurrence: None)
  Receive Date: 20100528
  Receipt Date: 20100517
  Transmission Date: 20101027
  Serious: Yes (Death, Hospitalization)
  Sender: FDA-Public Use
  Company Number: 2009AC000193

PATIENT
  Age: 79 Year
  Sex: Female

DRUGS (41)
  1. DIGOXIN [Suspect]
     Dosage: 0.125 MG; MWF; PO
     Route: 048
     Dates: start: 20060401, end: 20080501
  2. EFFEXOR [Concomitant]
  3. REVATIO [Concomitant]
  4. PEPCID [Concomitant]
  5. ASPIRIN [Concomitant]
  6. LASIX [Concomitant]
  7. ENABLEX [Concomitant]
  8. VERSED [Concomitant]
  9. FENTANYL [Concomitant]
  10. ATENOLOL [Concomitant]
  11. CRESTOR [Concomitant]
  12. ATACAND [Concomitant]
  13. ACIPHEX [Concomitant]
  14. METOCLOPRAMIDE [Concomitant]
  15. POTASSIUM [Concomitant]
  16. ENABLEX [Concomitant]
  17. AVELOX [Concomitant]
  18. EFFEXOR [Concomitant]
  19. REVATIO [Concomitant]
  20. PEPCID [Concomitant]
  21. ASPIRIN [Concomitant]
  22. LASIX [Concomitant]
  23. ENABLEX [Concomitant]
  24. HEPARIN [Concomitant]
  25. TRACLEER [Concomitant]
  26. VANCOMYCIN [Concomitant]
  27. WARFARIN SODIUM [Concomitant]
  28. ROXANOL [Concomitant]
  29. ATIVAN [Concomitant]
  30. PROTONIX [Concomitant]
  31. VESICARE [Concomitant]
  32. ROCEPHIN [Concomitant]
  33. VERAPAMIL [Concomitant]
  34. CIPRO [Concomitant]
  35. VYTORIN [Concomitant]
  36. LEVOFLOXACIN [Concomitant]
  37. VENTAVIS [Concomitant]
  38. *CANDESTARTIN [Concomitant]
  39. VENLAFAXINE HCI [Concomitant]
  40. XOPENEX [Concomitant]
  41. ATROVENT [Concomitant]

REACTIONS (51)
  - AMNESIA [None]
  - ASTHENIA [None]
  - ATRIOVENTRICULAR BLOCK FIRST DEGREE [None]
  - CARDIAC FAILURE [None]
  - CARDIAC FAILURE CONGESTIVE [None]
  - CARDIAC FLUTTER [None]
  - CARDIAC MURMUR [None]
  - CARDIAC OUTPUT DECREASED [None]
  - CAROTID ARTERY STENOSIS [None]
  - CEREBRAL ATROPHY [None]
  - CHEST PAIN [None]
  - CONJUNCTIVITIS [None]
  - COUGH [None]
  - DEPRESSION [None]
  - DIZZINESS [None]
  - DYSPHAGIA [None]
  - DYSPNOEA [None]
  - ECONOMIC PROBLEM [None]
  - EMOTIONAL DISORDER [None]
  - FALL [None]
  - FATIGUE [None]
  - GASTROOESOPHAGEAL REFLUX DISEASE [None]
  - HEPATIC CONGESTION [None]
  - HEPATIC FAILURE [None]
  - JOINT SWELLING [None]
  - LETHARGY [None]
  - LOSS OF CONSCIOUSNESS [None]
  - MENTAL IMPAIRMENT [None]
  - MITRAL VALVE PROLAPSE [None]
  - MULTI-ORGAN FAILURE [None]
  - MULTIPLE INJURIES [None]
  - NAUSEA [None]
  - OEDEMA PERIPHERAL [None]
  - PAIN [None]
  - PNEUMONIA [None]
  - PULMONARY EMBOLISM [None]
  - PULMONARY HYPERTENSION [None]
  - PULMONARY INFARCTION [None]
  - RENAL FAILURE [None]
  - RESPIRATORY FAILURE [None]
  - RIGHT VENTRICULAR HYPERTROPHY [None]
  - SEPSIS [None]
  - SINUS BRADYCARDIA [None]
  - SYNCOPE [None]
  - SYSTEMIC INFLAMMATORY RESPONSE SYNDROME [None]
  - THYROID NEOPLASM [None]
  - TRICUSPID VALVE INCOMPETENCE [None]
  - UPPER RESPIRATORY TRACT INFECTION [None]
  - URINARY TRACT INFECTION [None]
  - VOMITING [None]
  - WEIGHT DECREASED [None]
